FAERS Safety Report 17499723 (Version 1)
Quarter: 2020Q1

REPORT INFORMATION
  Report Type: Spontaneous
  Country: FR (occurrence: FR)
  Receive Date: 20200304
  Receipt Date: 20200304
  Transmission Date: 20200409
  Serious: Yes (Other)
  Sender: FDA-Public Use
  Company Number: FR-TEVA-2020-FR-1193078

PATIENT
  Age: 73 Year
  Sex: Male
  Weight: 71 kg

DRUGS (7)
  1. DOPACEPTIN 5 MG/ML, SOLUTION POUR PERFUSION [Suspect]
     Active Substance: APOMORPHINE HYDROCHLORIDE
     Indication: PARKINSON^S DISEASE
     Dosage: 5.1MG/H/DAY
     Route: 042
     Dates: start: 20180712
  2. NEUPRO [Suspect]
     Active Substance: ROTIGOTINE
     Indication: PARKINSON^S DISEASE
     Dosage: 10MG
     Route: 062
  3. GAVISCON [Concomitant]
     Active Substance: ALUMINUM HYDROXIDE\MAGNESIUM CARBONATE
  4. AZILECT [Suspect]
     Active Substance: RASAGILINE MESYLATE
     Indication: PARKINSON^S DISEASE
     Dosage: 1 DOSAGE FORM
     Route: 048
  5. OGASTORO [Concomitant]
     Active Substance: LANSOPRAZOLE
  6. SINEMET [Suspect]
     Active Substance: CARBIDOPA\LEVODOPA
     Indication: PARKINSON^S DISEASE
     Dosage: 3 DOSAGE FORMS
     Route: 048
  7. EBASTINE [Concomitant]
     Active Substance: EBASTINE

REACTIONS (2)
  - Impulse-control disorder [Not Recovered/Not Resolved]
  - Gambling disorder [Not Recovered/Not Resolved]

NARRATIVE: CASE EVENT DATE: 202001
